FAERS Safety Report 5379747-9 (Version None)
Quarter: 2007Q3

REPORT INFORMATION
  Report Type: 
  Country: None (occurrence: None)
  Receive Date: 20070706
  Receipt Date: 20070627
  Transmission Date: 20080115
  Serious: Yes (Other)
  Sender: FDA-Public Use
  Company Number: PHMT2007CA01493

PATIENT
  Sex: Male

DRUGS (1)
  1. ZOMETA [Suspect]

REACTIONS (3)
  - IMPAIRED HEALING [None]
  - MOUTH ULCERATION [None]
  - OSTEONECROSIS [None]
